FAERS Safety Report 9929102 (Version 2)
Quarter: 2014Q1

REPORT INFORMATION
  Report Type: Report from Study
  Country: US (occurrence: US)
  Receive Date: 20140227
  Receipt Date: 20140227
  Transmission Date: 20141002
  Serious: Yes (Hospitalization, Other)
  Sender: FDA-Public Use
  Company Number: US-ELI_LILLY_AND_COMPANY-US201207007082

PATIENT
  Sex: Female
  Weight: 57.14 kg

DRUGS (11)
  1. TERIPARATIDE [Suspect]
     Indication: OSTEOPOROSIS
     Dosage: 20 UG, QD
     Route: 058
     Dates: start: 20120717
  2. TERIPARATIDE [Suspect]
     Dosage: 20 UG, QD
     Route: 058
  3. TERIPARATIDE [Suspect]
     Dosage: 20 UG, QD
     Route: 058
  4. TERIPARATIDE [Suspect]
     Dosage: 20 UG, QD
     Route: 058
  5. TERIPARATIDE [Suspect]
     Dosage: 20 UG, QD
     Route: 058
  6. TERIPARATIDE [Suspect]
     Dosage: 20 UG, QD
     Route: 065
  7. VANCOMYCIN [Suspect]
     Indication: STAPHYLOCOCCAL INFECTION
     Route: 065
  8. QVAR [Concomitant]
     Indication: PRODUCT USED FOR UNKNOWN INDICATION
     Dosage: 40 UG, BID
     Route: 048
  9. QVAR [Concomitant]
     Dosage: 80 UG, BID
     Route: 048
  10. LEVAQUIN [Concomitant]
     Indication: PRODUCT USED FOR UNKNOWN INDICATION
     Dosage: 500 MG, QD
     Route: 048
  11. ACIDOPHILUS [Concomitant]
     Indication: PRODUCT USED FOR UNKNOWN INDICATION
     Dosage: UNK
     Route: 065

REACTIONS (48)
  - Pelvic fracture [Unknown]
  - Rib fracture [Unknown]
  - Fall [Unknown]
  - Dizziness [Unknown]
  - Staphylococcal infection [Recovered/Resolved]
  - Pneumonia [Unknown]
  - Dyspnoea [Unknown]
  - Pyrexia [Unknown]
  - Atelectasis [Unknown]
  - Drug hypersensitivity [Unknown]
  - Asthma [Unknown]
  - Delirium [Unknown]
  - Candida infection [Unknown]
  - Pulmonary embolism [Unknown]
  - Palpitations [Unknown]
  - Heart rate increased [Not Recovered/Not Resolved]
  - Colitis [Recovered/Resolved]
  - Rectal haemorrhage [Recovered/Resolved]
  - Memory impairment [Unknown]
  - Fall [Not Recovered/Not Resolved]
  - Joint crepitation [Unknown]
  - Malaise [Unknown]
  - Muscular weakness [Unknown]
  - Hot flush [Unknown]
  - General symptom [Unknown]
  - Acne [Unknown]
  - Skin exfoliation [Not Recovered/Not Resolved]
  - Injection site scar [Unknown]
  - Fatigue [Unknown]
  - Presyncope [Unknown]
  - Eyelid oedema [Unknown]
  - Hyperhidrosis [Unknown]
  - Dyspnoea [Unknown]
  - Hypertension [Unknown]
  - Headache [Not Recovered/Not Resolved]
  - Asthenia [Unknown]
  - Dizziness [Not Recovered/Not Resolved]
  - Nausea [Not Recovered/Not Resolved]
  - Wrong technique in drug usage process [Unknown]
  - Insomnia [Not Recovered/Not Resolved]
  - Dyspepsia [Unknown]
  - Rhinitis [Not Recovered/Not Resolved]
  - Balance disorder [Unknown]
  - Pruritus generalised [Unknown]
  - Pain [Unknown]
  - Constipation [Unknown]
  - Intervertebral disc degeneration [Not Recovered/Not Resolved]
  - Pain in extremity [Unknown]
